FAERS Safety Report 6261580-7 (Version None)
Quarter: 2009Q3

REPORT INFORMATION
  Report Type: 
  Country: None (occurrence: None)
  Receive Date: 20090709
  Receipt Date: 20090702
  Transmission Date: 20100115
  Serious: Yes (Hospitalization, Other)
  Sender: FDA-Public Use
  Company Number: PHHY2009CH26919

PATIENT
  Age: 75 Year
  Sex: Female

DRUGS (8)
  1. RASILEZ HCT [Suspect]
     Indication: HYPERTENSION
     Dosage: 300/25 MG/DAY
     Dates: start: 20090505, end: 20090518
  2. METFORMIN HCL [Suspect]
     Indication: DIABETES MELLITUS
     Dosage: UNK
     Dates: end: 20090522
  3. VENLAFAXINE HYDROCHLORIDE [Concomitant]
     Dosage: UNK
  4. ZYPREXA [Concomitant]
     Dosage: UNK
  5. OMEPRAZOLE [Concomitant]
     Dosage: UNK
  6. PRAVASTATIN [Concomitant]
     Dosage: UNK
  7. METOPROLOL [Concomitant]
     Dosage: UNK
  8. NOVONORM [Concomitant]
     Dosage: UNK

REACTIONS (5)
  - ANURIA [None]
  - BLOOD CREATININE INCREASED [None]
  - HYPERKALAEMIA [None]
  - LACTIC ACIDOSIS [None]
  - RENAL FAILURE ACUTE [None]
